FAERS Safety Report 20855104 (Version 1)
Quarter: 2022Q2

REPORT INFORMATION
  Report Type: Spontaneous
  Country: US (occurrence: US)
  Receive Date: 20220520
  Receipt Date: 20220520
  Transmission Date: 20220721
  Serious: Yes (Other)
  Sender: FDA-Public Use
  Company Number: US-ANIPHARMA-2022-US-011701

PATIENT
  Age: 76 Year
  Sex: Female
  Weight: 90.72 kg

DRUGS (4)
  1. NEBIVOLOL HYDROCHLORIDE [Suspect]
     Active Substance: NEBIVOLOL HYDROCHLORIDE
     Indication: Product used for unknown indication
     Dates: start: 2021
  2. NIFEDIPINE [Concomitant]
     Active Substance: NIFEDIPINE
  3. vitamin D/calcitriol [Concomitant]
  4. UNSPECIFIED INGREDIENT [Concomitant]
     Active Substance: UNSPECIFIED INGREDIENT

REACTIONS (4)
  - Visual impairment [Unknown]
  - Fall [Unknown]
  - Ankle fracture [Unknown]
  - Cataract [Unknown]

NARRATIVE: CASE EVENT DATE: 20210101
